FAERS Safety Report 5156992-9 (Version None)
Quarter: 2006Q4

REPORT INFORMATION
  Report Type: 
  Country: None (occurrence: None)
  Receive Date: 20061127
  Receipt Date: 20061116
  Transmission Date: 20070319
  Serious: Yes (Life-Threatening, Hospitalization, Other)
  Sender: FDA-Public Use
  Company Number: US-JNJFOC-20061104038

PATIENT
  Sex: Male
  Weight: 65.77 kg

DRUGS (2)
  1. REMICADE [Suspect]
     Route: 042
  2. REMICADE [Suspect]
     Indication: CROHN'S DISEASE
     Route: 042

REACTIONS (5)
  - CARDIAC ASSISTANCE DEVICE USER [None]
  - DYSPNOEA [None]
  - FLUID RETENTION [None]
  - IMPLANTABLE DEFIBRILLATOR INSERTION [None]
  - PERICARDIAL EFFUSION [None]
